FAERS Safety Report 5949422-8 (Version None)
Quarter: 2008Q4

REPORT INFORMATION
  Report Type: 
  Country: None (occurrence: None)
  Receive Date: 20081112
  Receipt Date: 20081031
  Transmission Date: 20090506
  Serious: Yes (Hospitalization, Other)
  Sender: FDA-Public Use
  Company Number: PHEH2008US09568

PATIENT
  Age: 79 Year
  Sex: Female

DRUGS (1)
  1. ZOMETA [Suspect]
     Dosage: UNK
     Dates: start: 20081021

REACTIONS (15)
  - ARTHRALGIA [None]
  - BLOOD POTASSIUM DECREASED [None]
  - BONE PAIN [None]
  - CHILLS [None]
  - CONJUNCTIVAL DISORDER [None]
  - CORNEAL OEDEMA [None]
  - DIZZINESS [None]
  - EYE PAIN [None]
  - EYE SWELLING [None]
  - HEART RATE IRREGULAR [None]
  - INFLUENZA LIKE ILLNESS [None]
  - OCULAR HYPERAEMIA [None]
  - OXYGEN SATURATION DECREASED [None]
  - PYREXIA [None]
  - SYNCOPE [None]
